FAERS Safety Report 19437543 (Version 1)
Quarter: 2021Q2

REPORT INFORMATION
  Report Type: Spontaneous
  Country: US (occurrence: US)
  Receive Date: 20210618
  Receipt Date: 20210618
  Transmission Date: 20210717
  Serious: No
  Sender: FDA-Public Use
  Company Number: US-BIOHAVEN PHARMACEUTICALS-2021BHV00630

PATIENT
  Sex: Male

DRUGS (13)
  1. LEVOTHYROXINE. [Concomitant]
     Active Substance: LEVOTHYROXINE
  2. ATORVASTATIN [Concomitant]
     Active Substance: ATORVASTATIN
  3. TRAZODONE [Concomitant]
     Active Substance: TRAZODONE HYDROCHLORIDE
  4. UNSPECIFIED PRODUCT [Suspect]
     Active Substance: UNSPECIFIED INGREDIENT
  5. DONEPEZIL. [Concomitant]
     Active Substance: DONEPEZIL
  6. EMGALITY [Concomitant]
     Active Substance: GALCANEZUMAB-GNLM
     Dosage: UNK, 1X/MONTH IN THE BELLY
  7. NURTEC ODT [Suspect]
     Active Substance: RIMEGEPANT SULFATE
     Indication: PAIN
  8. NEOSPORIN OPHTHALMIC SOLUTION [Suspect]
     Active Substance: GRAMICIDIN\NEOMYCIN SULFATE\POLYMYXIN B SULFATE
  9. NURTEC ODT [Suspect]
     Active Substance: RIMEGEPANT SULFATE
     Indication: HEADACHE
     Dosage: 75 MG, ONCE
     Route: 048
  10. MONTELUKAST [Concomitant]
     Active Substance: MONTELUKAST SODIUM
     Dosage: UNK MG
  11. XANAX [Concomitant]
     Active Substance: ALPRAZOLAM
  12. CYMBALTA [Concomitant]
     Active Substance: DULOXETINE HYDROCHLORIDE
  13. MEMANTINE. [Concomitant]
     Active Substance: MEMANTINE
     Dosage: 5 MG

REACTIONS (3)
  - Eye pruritus [Recovered/Resolved]
  - Eye swelling [Recovered/Resolved]
  - Drug ineffective [Not Recovered/Not Resolved]
